FAERS Safety Report 6273017-2 (Version None)
Quarter: 2009Q3

REPORT INFORMATION
  Report Type: 
  Country: None (occurrence: None)
  Receive Date: 20090716
  Receipt Date: 20090716
  Transmission Date: 20100115
  Serious: Yes (Hospitalization)
  Sender: FDA-Public Use
  Company Number: None

PATIENT
  Sex: Male
  Weight: 74.2 kg

DRUGS (3)
  1. FLUOROURACIL [Suspect]
     Dosage: 5260MG
     Dates: end: 20090624
  2. LEUCOVORIN CALCIUM [Suspect]
     Dosage: 760 MG
     Dates: end: 20090624
  3. ELOXATIN [Suspect]
     Dosage: 160 MG
     Dates: end: 20090624

REACTIONS (3)
  - DYSPNOEA [None]
  - PAIN [None]
  - PULMONARY EMBOLISM [None]
